FAERS Safety Report 10287140 (Version 2)
Quarter: 2014Q3

REPORT INFORMATION
  Report Type: Spontaneous
  Country: ZA (occurrence: ZA)
  Receive Date: 20140709
  Receipt Date: 20140709
  Transmission Date: 20150326
  Serious: Yes (Hospitalization)
  Sender: FDA-Public Use
  Company Number: ZA-ABBVIE-14K-143-1252114-00

PATIENT
  Age: 74 Year
  Sex: Female

DRUGS (3)
  1. HUMIRA [Suspect]
     Active Substance: ADALIMUMAB
     Indication: RHEUMATOID ARTHRITIS
     Route: 058
     Dates: start: 201312
  2. SPIRACTIN [Concomitant]
     Active Substance: SPIRONOLACTONE
     Indication: PRODUCT USED FOR UNKNOWN INDICATION
  3. PURESIS [Concomitant]
     Active Substance: FUROSEMIDE
     Indication: PRODUCT USED FOR UNKNOWN INDICATION

REACTIONS (10)
  - Abscess limb [Recovering/Resolving]
  - Blood pressure decreased [Unknown]
  - Localised infection [Recovering/Resolving]
  - Vasculitis [Not Recovered/Not Resolved]
  - Feeling hot [Recovering/Resolving]
  - Pain in extremity [Recovering/Resolving]
  - Peripheral embolism [Unknown]
  - Inflammation [Recovering/Resolving]
  - Peripheral swelling [Recovering/Resolving]
  - Erythema [Recovering/Resolving]

NARRATIVE: CASE EVENT DATE: 201406
